FAERS Safety Report 11875415 (Version 2)
Quarter: 2016Q1

REPORT INFORMATION
  Report Type: Spontaneous
  Country: US (occurrence: US)
  Receive Date: 20151229
  Receipt Date: 20160114
  Transmission Date: 20160526
  Serious: Yes (Death)
  Sender: FDA-Public Use
  Company Number: US-MYLANLABS-2015M1046762

PATIENT

DRUGS (1)
  1. CYSTAGON [Suspect]
     Active Substance: CYSTEAMINE BITARTRATE
     Indication: AMINO ACID METABOLISM DISORDER
     Dosage: 550 MG, QID
     Route: 048
     Dates: start: 20020201

REACTIONS (1)
  - Death [Fatal]

NARRATIVE: CASE EVENT DATE: 20151204
